FAERS Safety Report 23020527 (Version 1)
Quarter: 2023Q4

REPORT INFORMATION
  Report Type: Spontaneous
  Country: US (occurrence: US)
  Receive Date: 20231003
  Receipt Date: 20231003
  Transmission Date: 20240109
  Serious: No
  Sender: FDA-Public Use
  Company Number: US-ABBVIE-5431734

PATIENT
  Sex: Female
  Weight: 52 kg

DRUGS (5)
  1. RESTASIS [Suspect]
     Active Substance: CYCLOSPORINE
     Indication: Dry eye
     Dosage: 0.5MG/ML, START DATE TEXT: 8 TO 10 YEARS
     Route: 047
     Dates: end: 202303
  2. RESTASIS [Suspect]
     Active Substance: CYCLOSPORINE
     Dosage: 0.5MG/ML
     Route: 047
     Dates: start: 202303
  3. IRBESARTANA [Concomitant]
     Indication: Hypertension
     Dosage: 150 MILLIGRAM
  4. PROLIA [Concomitant]
     Active Substance: DENOSUMAB
     Indication: Osteoporosis
     Dates: start: 2019
  5. FELODIPINE [Concomitant]
     Active Substance: FELODIPINE
     Indication: Hypertension
     Dosage: 2.5 MILLIGRAM

REACTIONS (2)
  - Vision blurred [Not Recovered/Not Resolved]
  - Eye irritation [Not Recovered/Not Resolved]

NARRATIVE: CASE EVENT DATE: 20230101
